FAERS Safety Report 13093076 (Version 1)
Quarter: 2017Q1

REPORT INFORMATION
  Report Type: Spontaneous
  Country: US (occurrence: US)
  Receive Date: 20170105
  Receipt Date: 20170105
  Transmission Date: 20170428
  Serious: Yes (Other)
  Sender: FDA-Public Use
  Company Number: None

PATIENT
  Age: 65 Year
  Sex: Female
  Weight: 77.4 kg

DRUGS (7)
  1. LEVOTHYROXINE. [Concomitant]
     Active Substance: LEVOTHYROXINE
  2. EMERGEN-C [Concomitant]
     Active Substance: VITAMINS
  3. MUCINEX [Concomitant]
     Active Substance: GUAIFENESIN
  4. OMEPROZAL [Concomitant]
  5. ALBUTEROL SULPHATE INHALATION SO RITE DOSE [Suspect]
     Active Substance: ALBUTEROL SULFATE
     Indication: BRONCHITIS
     Dosage: 1 VIAL EVERY 6 HOURS RESPIRATORY (INHALATION)?          ?
     Route: 055
     Dates: start: 20170103
  6. REQUIP [Concomitant]
     Active Substance: ROPINIROLE HYDROCHLORIDE
  7. CELEXA [Concomitant]
     Active Substance: CITALOPRAM HYDROBROMIDE

REACTIONS (4)
  - Vomiting [None]
  - Nausea [None]
  - Dizziness [None]
  - Feeling jittery [None]

NARRATIVE: CASE EVENT DATE: 20170105
